FAERS Safety Report 7169767-6 (Version None)
Quarter: 2010Q4

REPORT INFORMATION
  Report Type: 
  Country: None (occurrence: None)
  Receive Date: 20101217
  Receipt Date: 20100330
  Transmission Date: 20110411
  Serious: Yes (Other)
  Sender: FDA-Public Use
  Company Number: A0853776A

PATIENT

DRUGS (1)
  1. SORIATANE [Suspect]
     Indication: PSORIASIS

REACTIONS (1)
  - PSORIASIS [None]
